FAERS Safety Report 25491286 (Version 2)
Quarter: 2025Q3

REPORT INFORMATION
  Report Type: Report from Study
  Country: US (occurrence: US)
  Receive Date: 20250629
  Receipt Date: 20250725
  Transmission Date: 20251021
  Serious: No
  Sender: ACADIA PHARMACEUTICALS
  Company Number: US-ACADIA PHARMACEUTICALS INC.-ACA-2025-PIM-007588

PATIENT
  Sex: Male

DRUGS (15)
  1. NUPLAZID [Suspect]
     Active Substance: PIMAVANSERIN TARTRATE
     Indication: Parkinson^s disease psychosis
     Dosage: 34 MILLIGRAM, QD
     Route: 048
  2. ATORVASTATIN CALCIUM [Concomitant]
     Active Substance: ATORVASTATIN CALCIUM
  3. MIDODRINE HYDROCHLORIDE [Concomitant]
     Active Substance: MIDODRINE HYDROCHLORIDE
  4. RIVASTIGMINE [Concomitant]
     Active Substance: RIVASTIGMINE
     Dosage: 13.3 MILLIGRAM, QD (13.3 MG/24H PATCH TD24)
  5. CENTRUM ADULTS [Concomitant]
  6. FLUDROCORTISONE ACETATE [Concomitant]
     Active Substance: FLUDROCORTISONE ACETATE
  7. VITAMIN D3 [Concomitant]
     Active Substance: CHOLECALCIFEROL
  8. INBRIJA [Concomitant]
     Active Substance: LEVODOPA
  9. LEVETIRACETAM [Concomitant]
     Active Substance: LEVETIRACETAM
  10. TYLENOL EXTRA STRENGTH [Concomitant]
     Active Substance: ACETAMINOPHEN
  11. CARBIDOPA LEVODOPA [Concomitant]
     Active Substance: CARBIDOPA\LEVODOPA
  12. ZINC [Concomitant]
     Active Substance: ZINC
  13. MAGNESIUM CITRATE [Concomitant]
     Active Substance: MAGNESIUM CITRATE
  14. LYSINE [Concomitant]
     Active Substance: LYSINE
  15. MELATONIN [Concomitant]
     Active Substance: MELATONIN

REACTIONS (5)
  - Dysgraphia [Unknown]
  - Aphasia [Unknown]
  - Gait inability [Unknown]
  - Hypotension [Not Recovered/Not Resolved]
  - Drug hypersensitivity [Unknown]
